FAERS Safety Report 6184724-4 (Version None)
Quarter: 2009Q2

REPORT INFORMATION
  Report Type: 
  Country: None (occurrence: None)
  Receive Date: 20090508
  Receipt Date: 20090506
  Transmission Date: 20091009
  Serious: No
  Sender: FDA-Public Use
  Company Number: US-B.I. PHARMACEUTICALS,INC./RIDGEFIELD-2009-BP-05703BP

PATIENT
  Sex: Male

DRUGS (13)
  1. COMBIVENT [Suspect]
     Indication: CHRONIC OBSTRUCTIVE PULMONARY DISEASE
     Dosage: 8PUF
     Route: 055
     Dates: start: 20090504, end: 20090504
  2. ATIVAN [Concomitant]
     Indication: ALCOHOL WITHDRAWAL SYNDROME
     Route: 048
  3. THIAMINE HCL [Concomitant]
     Indication: ALCOHOL WITHDRAWAL SYNDROME
     Route: 048
  4. FOLIC ACID [Concomitant]
     Indication: ALCOHOL WITHDRAWAL SYNDROME
     Route: 048
  5. LORAZEPAM [Concomitant]
     Indication: ALCOHOL WITHDRAWAL SYNDROME
     Route: 048
  6. ACETAMINOPHEN [Concomitant]
     Route: 048
  7. ASPIRIN [Concomitant]
     Route: 048
  8. DILTIAZEM [Concomitant]
     Indication: HYPERTENSION
     Route: 048
  9. HEPARIN [Concomitant]
     Indication: THROMBOSIS PROPHYLAXIS
     Route: 058
  10. VANCOMYCIN HCL [Concomitant]
     Indication: PNEUMONIA
  11. PANTOPRZAOL [Concomitant]
     Route: 048
  12. METOPROLOL [Concomitant]
     Indication: HYPERTENSION
  13. MOXIFLOXACIN HCL [Concomitant]

REACTIONS (2)
  - HYPERHIDROSIS [None]
  - WHEEZING [None]
